FAERS Safety Report 8262909-0 (Version None)
Quarter: 2012Q2

REPORT INFORMATION
  Report Type: 
  Country: None (occurrence: None)
  Receive Date: 20120405
  Receipt Date: 20120330
  Transmission Date: 20120825
  Serious: Yes (Hospitalization)
  Sender: FDA-Public Use
  Company Number: DE-GLAXOSMITHKLINE-B0786755B

PATIENT
  Sex: Female
  Weight: 60 kg

DRUGS (4)
  1. TRASTUZUMAB [Suspect]
     Indication: BREAST CANCER
     Dosage: 354MG EVERY 3 WEEKS
     Route: 042
     Dates: start: 20120106
  2. DOXORUBICIN HCL [Suspect]
     Indication: BREAST CANCER
     Dosage: 34MG WEEKLY
     Route: 042
     Dates: start: 20120106
  3. LAPATINIB [Suspect]
     Indication: BREAST CANCER
     Dosage: 500MG PER DAY
     Route: 048
     Dates: start: 20120106
  4. PACLITAXEL [Suspect]
     Indication: BREAST CANCER
     Dosage: 127MG WEEKLY
     Route: 042
     Dates: start: 20120106

REACTIONS (1)
  - ABDOMINAL PAIN [None]
